FAERS Safety Report 12274904 (Version 2)
Quarter: 2017Q2

REPORT INFORMATION
  Report Type: Spontaneous
  Country: US (occurrence: US)
  Receive Date: 20160415
  Receipt Date: 20170418
  Transmission Date: 20170830
  Serious: No
  Sender: FDA-Public Use
  Company Number: US-ALLERGAN-1637483US

PATIENT
  Age: 6 Year
  Sex: Female

DRUGS (2)
  1. LATISSE [Suspect]
     Active Substance: BIMATOPROST
     Indication: ALOPECIA
     Dosage: UNK
     Route: 061
     Dates: start: 2013, end: 201509
  2. LATISSE [Suspect]
     Active Substance: BIMATOPROST
     Dosage: UNK
     Route: 061
     Dates: start: 201602

REACTIONS (4)
  - Drug dose omission [Unknown]
  - Drug administered at inappropriate site [Unknown]
  - Hair growth abnormal [Recovered/Resolved]
  - Off label use [Unknown]
